FAERS Safety Report 14569914 (Version 1)
Quarter: 2018Q1

REPORT INFORMATION
  Report Type: Spontaneous
  Country: GB (occurrence: GB)
  Receive Date: 20180225
  Receipt Date: 20180225
  Transmission Date: 20180509
  Serious: Yes (Other)
  Sender: FDA-Public Use
  Company Number: GB-DEXPHARM-20180103

PATIENT
  Age: 59 Year
  Sex: Female
  Weight: 104.77 kg

DRUGS (4)
  1. CODEINE [Concomitant]
     Active Substance: CODEINE
  2. OMEPRAZOLE- NOT DEXCEL^S PRODUCT [Suspect]
     Active Substance: OMEPRAZOLE
     Indication: COUGH
     Route: 048
     Dates: start: 20171219, end: 20180121
  3. NAPROXEN. [Concomitant]
     Active Substance: NAPROXEN
  4. THYROXINE [Concomitant]
     Active Substance: LEVOTHYROXINE

REACTIONS (3)
  - Wheezing [Recovered/Resolved]
  - Abnormal weight gain [Recovered/Resolved]
  - Dyspnoea [Recovered/Resolved]

NARRATIVE: CASE EVENT DATE: 20171227
